FAERS Safety Report 5592773-X (Version None)
Quarter: 2007Q4

REPORT INFORMATION
  Report Type: 
  Country: None (occurrence: None)
  Receive Date: 20071217
  Receipt Date: 20071029
  Transmission Date: 20080405
  Serious: No
  Sender: FDA-Public Use
  Company Number: BDI-010472

PATIENT

DRUGS (1)
  1. MULTIHANCE [Suspect]
     Indication: NUCLEAR MAGNETIC RESONANCE IMAGING
     Dosage: 16 ML ONCE IV
     Route: 042
     Dates: start: 20071017, end: 20071017

REACTIONS (3)
  - CHEST PAIN [None]
  - THROAT TIGHTNESS [None]
  - URTICARIA [None]
